FAERS Safety Report 12239842 (Version 1)
Quarter: 2016Q2

REPORT INFORMATION
  Report Type: Spontaneous
  Country: US (occurrence: US)
  Receive Date: 20160405
  Receipt Date: 20160405
  Transmission Date: 20160815
  Serious: No
  Sender: FDA-Public Use
  Company Number: US-ROCHE-1620624

PATIENT
  Sex: Female

DRUGS (6)
  1. AMOXICILLIN. [Concomitant]
     Active Substance: AMOXICILLIN
  2. ERIVEDGE [Suspect]
     Active Substance: VISMODEGIB
     Indication: LUNG NEOPLASM MALIGNANT
     Route: 048
     Dates: start: 20150729
  3. ACETAMINOPHEN. [Concomitant]
     Active Substance: ACETAMINOPHEN
  4. ALPRAZOLAM. [Concomitant]
     Active Substance: ALPRAZOLAM
  5. ERIVEDGE [Suspect]
     Active Substance: VISMODEGIB
     Indication: BRONCHIAL CARCINOMA
  6. ALBUTEROL SULFATE. [Concomitant]
     Active Substance: ALBUTEROL SULFATE

REACTIONS (1)
  - Scab [Unknown]
